FAERS Safety Report 5626962-2 (Version None)
Quarter: 2008Q1

REPORT INFORMATION
  Report Type: 
  Country: None (occurrence: None)
  Receive Date: 20080130
  Receipt Date: 20071106
  Transmission Date: 20080703
  Serious: Yes (Death, Hospitalization)
  Sender: FDA-Public Use
  Company Number: US-WYE-H01180907

PATIENT
  Age: 77 Year
  Sex: Male

DRUGS (4)
  1. CORDARONE [Suspect]
     Indication: BRADYCARDIA
     Dosage: 400, 200  MG 1 X PER 1 DAY
     Dates: start: 20030101, end: 20030101
  2. CORDARONE [Suspect]
     Indication: BRADYCARDIA
     Dosage: 400, 200  MG 1 X PER 1 DAY
     Dates: start: 20030101, end: 20040324
  3. AMIODARONE HCL [Suspect]
     Indication: BRADYCARDIA
     Dosage: 400, 200 MG 1 X PER 1 DAY
     Dates: start: 20030101, end: 20030101
  4. AMIODARONE HCL [Suspect]
     Indication: BRADYCARDIA
     Dosage: 400, 200 MG 1 X PER 1 DAY
     Dates: start: 20030101, end: 20040324

REACTIONS (2)
  - PULMONARY FIBROSIS [None]
  - RENAL FAILURE [None]
